FAERS Safety Report 10680909 (Version 2)
Quarter: 2015Q1

REPORT INFORMATION
  Report Type: Report from Study
  Country: US (occurrence: US)
  Receive Date: 20141229
  Receipt Date: 20150108
  Transmission Date: 20150720
  Serious: Yes (Hospitalization)
  Sender: FDA-Public Use
  Company Number: US-GILEAD-2014-0128769

PATIENT
  Age: 60 Year
  Sex: Male
  Weight: 78.5 kg

DRUGS (2)
  1. SOFOSBUVIR [Suspect]
     Active Substance: SOFOSBUVIR
     Indication: PRODUCT USED FOR UNKNOWN INDICATION
     Dosage: 400 MG, QD
     Route: 048
     Dates: start: 201410
  2. RIBASPHERE [Concomitant]
     Active Substance: RIBAVIRIN
     Dosage: UNK

REACTIONS (6)
  - Weight decreased [Not Recovered/Not Resolved]
  - Malaise [Unknown]
  - Decreased appetite [Unknown]
  - Headache [Unknown]
  - Asthenia [Unknown]
  - Nervousness [Unknown]

NARRATIVE: CASE EVENT DATE: 2014
